FAERS Safety Report 11913090 (Version 2)
Quarter: 2017Q2

REPORT INFORMATION
  Report Type: Spontaneous
  Country: NZ (occurrence: NZ)
  Receive Date: 20160113
  Receipt Date: 20170530
  Transmission Date: 20170829
  Serious: Yes (Other)
  Sender: FDA-Public Use
  Company Number: NZ-SUN PHARMACEUTICAL INDUSTRIES LTD-2015R1-109450

PATIENT
  Age: 30 Year
  Sex: Male

DRUGS (8)
  1. ACETAZOLAMIDE. [Suspect]
     Active Substance: ACETAZOLAMIDE
     Indication: DIABETIC KETOACIDOSIS
     Dosage: 125 MG, BID
     Route: 048
  2. INSULIN [Concomitant]
     Active Substance: INSULIN NOS
     Indication: DIABETIC KETOACIDOSIS
     Dosage: UNK
     Route: 065
  3. ONDANSETRON [Concomitant]
     Active Substance: ONDANSETRON
     Indication: ANTIEMETIC SUPPORTIVE CARE
     Dosage: UNK
     Route: 042
  4. POTASSIUM/SODIUM CHLORIDE [Concomitant]
     Indication: DIABETIC KETOACIDOSIS
     Dosage: THREE LITERS INTRAVENOUS NORMAL SALINE WITH POTASSIUM (40 MMOL KCL/L) WAS ADMINISTERED OVER 4 HOURS
     Route: 042
  5. AMLODIPINE [Concomitant]
     Active Substance: AMLODIPINE BESYLATE
     Indication: HYPERTENSION
     Dosage: 2.5 MG, DAILY
     Route: 065
  6. INSULIN (LISPRO) [Concomitant]
     Active Substance: INSULIN LISPRO
     Indication: DIABETIC KETOACIDOSIS
     Dosage: UNK
     Route: 065
  7. INSULIN [Concomitant]
     Active Substance: INSULIN NOS
     Indication: DIABETIC KETOACIDOSIS
     Dosage: UNK
     Route: 040
  8. SERTRALINE [Concomitant]
     Active Substance: SERTRALINE HYDROCHLORIDE
     Indication: POST-TRAUMATIC STRESS DISORDER
     Dosage: 25 MG, DAILY
     Route: 065

REACTIONS (1)
  - Increased insulin requirement [Recovered/Resolved]
